FAERS Safety Report 10012788 (Version 1)
Quarter: 2014Q1

REPORT INFORMATION
  Report Type: Spontaneous
  Country: US (occurrence: US)
  Receive Date: 20140314
  Receipt Date: 20140314
  Transmission Date: 20141002
  Serious: Yes (Other)
  Sender: FDA-Public Use
  Company Number: CHPA2014US003829

PATIENT
  Age: 52 Year
  Sex: Female

DRUGS (5)
  1. ACETYLSALICYLIC ACID [Suspect]
     Dosage: UNK
     Route: 048
  2. VOLTAREN ^NOVARTIS^ [Concomitant]
     Indication: ARTHRITIS
  3. VOLTAREN ^NOVARTIS^ [Concomitant]
     Indication: BUNION
  4. VOLTAREN ^NOVARTIS^ [Concomitant]
     Indication: OSTEOARTHRITIS
  5. ABILIFY [Concomitant]

REACTIONS (2)
  - Blood disorder [Not Recovered/Not Resolved]
  - Platelet count decreased [Not Recovered/Not Resolved]
